FAERS Safety Report 17124604 (Version 2)
Quarter: 2020Q4

REPORT INFORMATION
  Report Type: Report from Study
  Country: US (occurrence: US)
  Receive Date: 20191206
  Receipt Date: 20201028
  Transmission Date: 20210113
  Serious: Yes (Other)
  Sender: FDA-Public Use
  Company Number: US-SA-2019SA338161

PATIENT

DRUGS (2)
  1. TERIFLUNOMIDE. [Suspect]
     Active Substance: TERIFLUNOMIDE
     Indication: MULTIPLE SCLEROSIS
     Dosage: 14 MG, QD
     Route: 048
     Dates: start: 20190909
  2. FOSAMAX [Concomitant]
     Active Substance: ALENDRONATE SODIUM

REACTIONS (5)
  - Nystagmus [Recovered/Resolved]
  - Fall [Recovered/Resolved]
  - Gait inability [Recovered/Resolved]
  - Muscle spasms [Unknown]
  - Bipolar disorder [Not Recovered/Not Resolved]

NARRATIVE: CASE EVENT DATE: 2019
